FAERS Safety Report 4511981-X (Version None)
Quarter: 2004Q4

REPORT INFORMATION
  Report Type: 
  Country: None (occurrence: None)
  Receive Date: 20041129
  Receipt Date: 20040121
  Transmission Date: 20050328
  Serious: No
  Sender: FDA-Public Use
  Company Number: US-BRISTOL-MYERS SQUIBB COMPANY-12483913

PATIENT
  Age: 71 Year
  Sex: Male
  Weight: 57 kg

DRUGS (1)
  1. SUSTIVA [Suspect]
     Indication: HIV INFECTION
     Route: 048
     Dates: start: 20031212

REACTIONS (11)
  - ASTHENIA [None]
  - BALANCE DISORDER [None]
  - COORDINATION ABNORMAL [None]
  - DISCOMFORT [None]
  - EXERCISE TOLERANCE DECREASED [None]
  - FEELING ABNORMAL [None]
  - INSOMNIA [None]
  - MEMORY IMPAIRMENT [None]
  - NAUSEA [None]
  - PSYCHIATRIC SYMPTOM [None]
  - TREMOR [None]
